FAERS Safety Report 8277067-6 (Version None)
Quarter: 2012Q2

REPORT INFORMATION
  Report Type: 
  Country: None (occurrence: None)
  Receive Date: 20120412
  Receipt Date: 20120404
  Transmission Date: 20120825
  Serious: Yes (Other)
  Sender: FDA-Public Use
  Company Number: PHFR2012GB002122

PATIENT
  Sex: Female

DRUGS (7)
  1. OMEPRAZOLE [Concomitant]
     Dosage: UNK
  2. LACTULOSE [Concomitant]
     Dosage: UNK
  3. DOCUSATE [Concomitant]
     Dosage: UNK
  4. SIMVASTATIN [Concomitant]
     Dosage: UNK
  5. CLOZARIL [Suspect]
     Indication: SCHIZOPHRENIA
     Route: 048
     Dates: start: 20000221
  6. MOVIPREP [Concomitant]
     Dosage: UNK
  7. AMISULPRIDE [Concomitant]
     Dosage: UNK

REACTIONS (2)
  - OROPHARYNGEAL PAIN [None]
  - BLADDER DISORDER [None]
